FAERS Safety Report 20917579 (Version 2)
Quarter: 2022Q2

REPORT INFORMATION
  Report Type: Spontaneous
  Country: FR (occurrence: FR)
  Receive Date: 20220606
  Receipt Date: 20220616
  Transmission Date: 20220721
  Serious: Yes (Other)
  Sender: FDA-Public Use
  Company Number: FR-Global Blood Therapeutics Inc-FR-GBT-22-03298

PATIENT
  Age: 12 Year
  Sex: Male

DRUGS (2)
  1. OXBRYTA [Suspect]
     Active Substance: VOXELOTOR
     Indication: Product used for unknown indication
     Dates: start: 20220510, end: 20220520
  2. OXBRYTA [Suspect]
     Active Substance: VOXELOTOR
     Dates: start: 20220530

REACTIONS (1)
  - Acute chest syndrome [Unknown]

NARRATIVE: CASE EVENT DATE: 20220501
